FAERS Safety Report 5964372-9 (Version None)
Quarter: 2008Q4

REPORT INFORMATION
  Report Type: 
  Country: None (occurrence: None)
  Receive Date: 20081124
  Receipt Date: 20081113
  Transmission Date: 20090506
  Serious: Yes (Life-Threatening)
  Sender: FDA-Public Use
  Company Number: IT-PFIZER INC-2008096370

PATIENT
  Sex: Male

DRUGS (2)
  1. SUTENT [Suspect]
     Indication: RENAL CELL CARCINOMA
     Route: 048
     Dates: start: 20080105, end: 20080908
  2. METFORMIN HCL [Concomitant]
     Route: 048
     Dates: start: 20060101, end: 20081017

REACTIONS (1)
  - DEEP VEIN THROMBOSIS [None]
